FAERS Safety Report 17519675 (Version 1)
Quarter: 2020Q1

REPORT INFORMATION
  Report Type: Spontaneous
  Country: SK (occurrence: SK)
  Receive Date: 20200309
  Receipt Date: 20200309
  Transmission Date: 20200409
  Serious: Yes (Hospitalization)
  Sender: FDA-Public Use
  Company Number: SK-BAUSCH-BL-2020-006722

PATIENT
  Age: 72 Year
  Sex: Female

DRUGS (4)
  1. ETANERCEPT [Suspect]
     Active Substance: ETANERCEPT
     Indication: RHEUMATOID ARTHRITIS
     Route: 058
  2. GENTAMICIN. [Suspect]
     Active Substance: GENTAMICIN
     Indication: INFECTION
     Route: 065
  3. CEFTRIAXON [Suspect]
     Active Substance: CEFTRIAXONE
     Indication: INFECTION
     Route: 065
  4. CLINDAMYCIN PHOSPHATE. [Suspect]
     Active Substance: CLINDAMYCIN PHOSPHATE
     Indication: INFECTION
     Route: 065

REACTIONS (11)
  - Intervertebral discitis [Unknown]
  - Muscle abscess [Unknown]
  - Pain in extremity [Unknown]
  - Febrile infection [Unknown]
  - Erysipelas [Unknown]
  - Bacterial sepsis [Unknown]
  - Angina pectoris [Unknown]
  - Back pain [Unknown]
  - Condition aggravated [Unknown]
  - Chronic kidney disease [Unknown]
  - Hypertensive urgency [Unknown]
